FAERS Safety Report 23592021 (Version 1)
Quarter: 2024Q1

REPORT INFORMATION
  Report Type: Report from Study
  Country: US (occurrence: US)
  Receive Date: 20240304
  Receipt Date: 20240304
  Transmission Date: 20240410
  Serious: No
  Sender: FDA-Public Use
  Company Number: US-DECIPHERA PHARMACEUTICALS LLC-2024US000158

PATIENT
  Age: 54 Year
  Sex: Male

DRUGS (1)
  1. QINLOCK [Suspect]
     Active Substance: RIPRETINIB
     Indication: Gastrointestinal stromal tumour
     Dosage: 150 MILLIGRAM, QD
     Route: 048
     Dates: start: 20210112

REACTIONS (5)
  - Cholelithiasis [Unknown]
  - Tinnitus [Unknown]
  - Pain in extremity [Unknown]
  - Dry skin [Unknown]
  - Hypertension [Unknown]
